FAERS Safety Report 15844939 (Version 2)
Quarter: 2019Q1

REPORT INFORMATION
  Report Type: Report from Study
  Country: US (occurrence: US)
  Receive Date: 20190119
  Receipt Date: 20190125
  Transmission Date: 20190417
  Serious: Yes (Hospitalization)
  Sender: FDA-Public Use
  Company Number: US-ACTELION-A-US2018-173695

PATIENT
  Age: 70 Year
  Sex: Female
  Weight: 73.47 kg

DRUGS (4)
  1. ADCIRCA [Concomitant]
     Active Substance: TADALAFIL
  2. COUMADIN [Concomitant]
     Active Substance: WARFARIN SODIUM
  3. REMODULIN [Concomitant]
     Active Substance: TREPROSTINIL
  4. TRACLEER [Suspect]
     Active Substance: BOSENTAN
     Indication: PULMONARY HYPERTENSION
     Dosage: 125 MG, BID
     Route: 048
     Dates: start: 2002

REACTIONS (25)
  - Anaemia [Unknown]
  - Pyrexia [Unknown]
  - Blood magnesium decreased [Unknown]
  - Device dislocation [Unknown]
  - Dyspnoea [Unknown]
  - Platelet count decreased [Recovered/Resolved]
  - Blood potassium decreased [Unknown]
  - Diarrhoea [Unknown]
  - Pain [Unknown]
  - Haematocrit increased [Not Recovered/Not Resolved]
  - Chills [Unknown]
  - Pain in extremity [Unknown]
  - Abdominal pain [Unknown]
  - Polycythaemia [Recovering/Resolving]
  - Haemoglobin increased [Recovered/Resolved]
  - Infusion site pain [Unknown]
  - Nausea [Unknown]
  - Insomnia [Unknown]
  - Cyanosis [Recovering/Resolving]
  - Red blood cell count increased [Not Recovered/Not Resolved]
  - Blood iron decreased [Unknown]
  - Pulmonary hypertension [Unknown]
  - Headache [Unknown]
  - Fatigue [Unknown]
  - Oedema peripheral [Unknown]

NARRATIVE: CASE EVENT DATE: 20180524
